FAERS Safety Report 6782413-6 (Version None)
Quarter: 2010Q2

REPORT INFORMATION
  Report Type: 
  Country: None (occurrence: None)
  Receive Date: 20100616
  Receipt Date: 20100602
  Transmission Date: 20101027
  Serious: Yes (Hospitalization)
  Sender: FDA-Public Use
  Company Number: A-US2010-37112

PATIENT
  Age: 46 Year
  Sex: Male

DRUGS (3)
  1. TRACLEER [Suspect]
     Indication: PULMONARY ARTERIAL HYPERTENSION
     Dosage: MG, ORAL
     Route: 048
     Dates: start: 20060112
  2. REVATIO [Concomitant]
  3. COUMADIN (WARFAIN SODIUM) [Concomitant]

REACTIONS (2)
  - HEART RATE IRREGULAR [None]
  - LOSS OF CONSCIOUSNESS [None]
